FAERS Safety Report 5077955-8 (Version None)
Quarter: 2006Q3

REPORT INFORMATION
  Report Type: 
  Country: None (occurrence: None)
  Receive Date: 20060811
  Receipt Date: 20060802
  Transmission Date: 20061208
  Serious: Yes (Other)
  Sender: FDA-Public Use
  Company Number: PHBS2006BR11808

PATIENT
  Age: 38 Year
  Sex: Female
  Weight: 91 kg

DRUGS (3)
  1. VOLTAREN [Suspect]
     Indication: PAIN IN EXTREMITY
     Dosage: 75 MG, ONCE/SINGLE
     Dates: start: 20040510, end: 20040510
  2. LOSARTAN POTASSIUM [Concomitant]
     Indication: HYPERTENSION
     Dosage: 50 MG/DAY
  3. CALTREN [Concomitant]
     Indication: HYPERTENSION
     Dosage: 20 MG/DAY

REACTIONS (15)
  - ANAEMIA [None]
  - DEPRESSION [None]
  - DIABETES MELLITUS [None]
  - HAEMATOMA [None]
  - INFLAMMATION [None]
  - MONOPLEGIA [None]
  - NERVOUSNESS [None]
  - OEDEMA PERIPHERAL [None]
  - PAIN [None]
  - PAIN IN EXTREMITY [None]
  - SENSATION OF HEAVINESS [None]
  - SENSORY LOSS [None]
  - SKIN FIBROSIS [None]
  - THERMAL BURN [None]
  - UPPER LIMB DEFORMITY [None]
